FAERS Safety Report 12993911 (Version 3)
Quarter: 2017Q2

REPORT INFORMATION
  Report Type: Spontaneous
  Country: US (occurrence: US)
  Receive Date: 20161202
  Receipt Date: 20170406
  Transmission Date: 20170830
  Serious: No
  Sender: FDA-Public Use
  Company Number: US-JNJFOC-20161101148

PATIENT
  Age: 29 Year
  Sex: Male
  Weight: 60.78 kg

DRUGS (1)
  1. RISPERDAL CONSTA [Suspect]
     Active Substance: RISPERIDONE
     Indication: SCHIZOPHRENIA
     Route: 030

REACTIONS (4)
  - Drug dose omission [Unknown]
  - Device malfunction [Unknown]
  - Wrong technique in product usage process [Unknown]
  - Device leakage [Unknown]

NARRATIVE: CASE EVENT DATE: 20161101
